FAERS Safety Report 7094614-0 (Version None)
Quarter: 2010Q4

REPORT INFORMATION
  Report Type: 
  Country: None (occurrence: None)
  Receive Date: 20101110
  Receipt Date: 20101104
  Transmission Date: 20110411
  Serious: Yes (Other)
  Sender: FDA-Public Use
  Company Number: US-PFIZER INC-2010124280

PATIENT
  Sex: Female

DRUGS (2)
  1. ZOLOFT [Suspect]
     Dosage: 25 MG, UNK
     Route: 048
  2. ZYVOX [Suspect]

REACTIONS (2)
  - INFECTION [None]
  - STAPHYLOCOCCAL INFECTION [None]
